FAERS Safety Report 9800423 (Version 3)
Quarter: 2014Q1

REPORT INFORMATION
  Report Type: Spontaneous
  Country: US (occurrence: US)
  Receive Date: 20140107
  Receipt Date: 20140207
  Transmission Date: 20141002
  Serious: Yes (Death, Other)
  Sender: FDA-Public Use
  Company Number: US-ROCHE-1329912

PATIENT
  Age: 52 Year
  Sex: Female
  Weight: 129.84 kg

DRUGS (4)
  1. XOLAIR [Suspect]
     Indication: PRODUCT USED FOR UNKNOWN INDICATION
     Route: 065
  2. PULMICORT [Concomitant]
  3. SINGULAIR [Concomitant]
  4. BROVANA [Concomitant]

REACTIONS (2)
  - Cardiac arrest [Fatal]
  - Fall [Unknown]
